FAERS Safety Report 19984454 (Version 1)
Quarter: 2021Q4

REPORT INFORMATION
  Report Type: Spontaneous
  Country: US (occurrence: US)
  Receive Date: 20211022
  Receipt Date: 20211022
  Transmission Date: 20220303
  Serious: Yes (Hospitalization, Disabling, Other)
  Sender: FDA-Public Use
  Company Number: None

PATIENT
  Age: 33 Year
  Sex: Male

DRUGS (2)
  1. CIPROFLOXACIN [Suspect]
     Active Substance: CIPROFLOXACIN
     Indication: Diverticulitis
     Dosage: ?          QUANTITY:1 TABLET(S);
     Route: 048
     Dates: start: 20201201, end: 20201209
  2. FLAGYL [Suspect]
     Active Substance: METRONIDAZOLE\METRONIDAZOLE HYDROCHLORIDE
     Indication: Diverticulitis
     Route: 048
     Dates: start: 20201201, end: 20201209

REACTIONS (13)
  - Toxicity to various agents [None]
  - Diverticulitis [None]
  - Tinnitus [None]
  - Arthralgia [None]
  - Myalgia [None]
  - Tendon pain [None]
  - Dizziness [None]
  - Tremor [None]
  - Tremor [None]
  - Depression [None]
  - Anxiety [None]
  - Ear pain [None]
  - Balance disorder [None]

NARRATIVE: CASE EVENT DATE: 20201201
